FAERS Safety Report 15306208 (Version 1)
Quarter: 2018Q3

REPORT INFORMATION
  Report Type: Report from Study
  Country: CN (occurrence: CN)
  Receive Date: 20180822
  Receipt Date: 20180822
  Transmission Date: 20181010
  Serious: Yes (Other)
  Sender: FDA-Public Use
  Company Number: CN-ROCHE-2171173

PATIENT

DRUGS (3)
  1. BEVACIZUMAB. [Suspect]
     Active Substance: BEVACIZUMAB
     Indication: NON-SMALL CELL LUNG CANCER STAGE III
     Route: 065
  2. CARBOPLATIN. [Suspect]
     Active Substance: CARBOPLATIN
     Indication: NON-SMALL CELL LUNG CANCER STAGE III
     Dosage: AREA UNDER THE CURVE OF 6
     Route: 065
  3. PACLITAXEL. [Suspect]
     Active Substance: PACLITAXEL
     Indication: NON-SMALL CELL LUNG CANCER STAGE III
     Route: 065

REACTIONS (14)
  - Anaemia [Unknown]
  - Nausea [Unknown]
  - Decreased appetite [Unknown]
  - Leukopenia [Unknown]
  - Neutropenia [Unknown]
  - Vomiting [Unknown]
  - Dermatitis [Unknown]
  - Rash [Unknown]
  - Infection [Unknown]
  - Thrombocytopenia [Unknown]
  - Hyponatraemia [Unknown]
  - Alanine aminotransferase abnormal [Unknown]
  - Febrile neutropenia [Unknown]
  - Pneumonitis [Unknown]
